FAERS Safety Report 16572852 (Version 1)
Quarter: 2019Q3

REPORT INFORMATION
  Report Type: Report from Study
  Country: DE (occurrence: DE)
  Receive Date: 20190715
  Receipt Date: 20190715
  Transmission Date: 20191004
  Serious: Yes (Hospitalization)
  Sender: FDA-Public Use
  Company Number: DE-MYLANLABS-2019M1064942

PATIENT
  Age: 24 Year
  Sex: Male

DRUGS (14)
  1. VALIUM [Suspect]
     Active Substance: DIAZEPAM
     Dosage: UNK
     Route: 042
     Dates: start: 20010103, end: 20010104
  2. GLIANIMON [Suspect]
     Active Substance: BENPERIDOL
     Indication: PRODUCT USED FOR UNKNOWN INDICATION
     Dosage: UNK
     Route: 041
     Dates: start: 20001115, end: 20001122
  3. VALIUM [Suspect]
     Active Substance: DIAZEPAM
     Dosage: UNK
     Route: 042
     Dates: start: 20001212, end: 20010102
  4. HALDOL [Suspect]
     Active Substance: HALOPERIDOL
     Indication: PRODUCT USED FOR UNKNOWN INDICATION
     Dosage: 25 MILLIGRAM, QD
     Route: 042
     Dates: start: 20001108
  5. GLIANIMON [Suspect]
     Active Substance: BENPERIDOL
     Dosage: UNK
     Route: 041
     Dates: start: 20001122, end: 20001124
  6. LEPONEX [Suspect]
     Active Substance: CLOZAPINE
     Indication: PRODUCT USED FOR UNKNOWN INDICATION
     Dosage: 25 MILLIGRAM, QD
     Route: 048
     Dates: start: 20001213, end: 20001223
  7. VALIUM [Suspect]
     Active Substance: DIAZEPAM
     Dosage: UNK
     Route: 042
     Dates: start: 20010105
  8. GLIANIMON [Suspect]
     Active Substance: BENPERIDOL
     Dosage: UNK
     Route: 041
     Dates: start: 20001124, end: 20001214
  9. GLIANIMON [Suspect]
     Active Substance: BENPERIDOL
     Dosage: UNK
     Route: 041
     Dates: start: 20001215, end: 20010111
  10. TEGRETAL [Concomitant]
     Active Substance: CARBAMAZEPINE
     Indication: PRODUCT USED FOR UNKNOWN INDICATION
     Dosage: 800 MILLIGRAM, QD
     Route: 048
     Dates: start: 20001116, end: 20010111
  11. LEPONEX [Suspect]
     Active Substance: CLOZAPINE
     Dosage: UNK
     Route: 048
     Dates: start: 20001224, end: 20001227
  12. LEPONEX [Suspect]
     Active Substance: CLOZAPINE
     Dosage: UNK
     Route: 048
     Dates: start: 20001228
  13. VALIUM [Suspect]
     Active Substance: DIAZEPAM
     Indication: PRODUCT USED FOR UNKNOWN INDICATION
     Dosage: UNK
     Route: 042
     Dates: start: 20001108, end: 20001120
  14. VALIUM [Suspect]
     Active Substance: DIAZEPAM
     Dosage: UNK
     Route: 042
     Dates: start: 20001121, end: 20001211

REACTIONS (2)
  - Enuresis [Recovered/Resolved]
  - Incontinence [Recovered/Resolved]

NARRATIVE: CASE EVENT DATE: 20001110
